FAERS Safety Report 5349413-4 (Version None)
Quarter: 2007Q2

REPORT INFORMATION
  Report Type: 
  Country: None (occurrence: None)
  Receive Date: 20070607
  Receipt Date: 20070529
  Transmission Date: 20071010
  Serious: Yes (Hospitalization, Disabling)
  Sender: FDA-Public Use
  Company Number: GB-ROCHE-496703

PATIENT
  Age: 36 Year
  Sex: Male
  Weight: 87 kg

DRUGS (10)
  1. PEGASYS [Suspect]
     Indication: HEPATITIS C
     Route: 058
     Dates: start: 20060323, end: 20070226
  2. EPREX [Suspect]
     Indication: ANAEMIA
     Route: 058
     Dates: start: 20060323, end: 20060901
  3. RIBAVIRIN [Concomitant]
     Indication: HEPATITIS C
     Route: 048
     Dates: start: 20060323, end: 20070226
  4. DIAZEPAM [Concomitant]
     Dosage: STARTED BEFORE MARCH 2002.
     Route: 048
  5. FUROSEMIDE [Concomitant]
     Dosage: STARTED BEFORE MARCH 2002.
     Route: 048
  6. LISINOPRIL [Concomitant]
     Dosage: STARTED BEFORE MARCH 2002.
     Route: 048
  7. LACTULOSE [Concomitant]
     Dosage: STARTED BEFORE MARCH 2002.
     Route: 048
  8. SENNA [Concomitant]
     Dosage: STARTED BEFORE MARCH 2002.
     Route: 048
  9. FOLINIC ACID [Concomitant]
     Dosage: STARTED BEFORE MARCH 2002.
     Route: 048
  10. METHADONE HCL [Concomitant]
     Dosage: STARTED BEFORE MARCH 2002.
     Route: 048

REACTIONS (1)
  - RED BLOOD CELL ABNORMALITY [None]
